FAERS Safety Report 4965802-1 (Version None)
Quarter: 2006Q2

REPORT INFORMATION
  Report Type: 
  Country: None (occurrence: None)
  Receive Date: 20060406
  Receipt Date: 20060406
  Transmission Date: 20061013
  Serious: Yes (Death)
  Sender: FDA-Public Use
  Company Number: None

PATIENT
  Sex: Male
  Weight: 72.5755 kg

DRUGS (1)
  1. AMIODARONE HCL [Suspect]
     Indication: ATRIAL FIBRILLATION
     Dosage: 200 MG BID PO
     Route: 048
     Dates: start: 20030701, end: 20060101

REACTIONS (13)
  - ASTHENIA [None]
  - BALANCE DISORDER [None]
  - DYSPHONIA [None]
  - FALL [None]
  - FEELING COLD [None]
  - GAIT DISTURBANCE [None]
  - HYPOTHYROIDISM [None]
  - INTUBATION COMPLICATION [None]
  - PNEUMONIA [None]
  - PULMONARY FIBROSIS [None]
  - PULMONARY TOXICITY [None]
  - RESPIRATORY ARREST [None]
  - WALKING AID USER [None]
